FAERS Safety Report 16752231 (Version 2)
Quarter: 2019Q3

REPORT INFORMATION
  Report Type: Report from Study
  Country: IT (occurrence: IT)
  Receive Date: 20190828
  Receipt Date: 20190830
  Transmission Date: 20191005
  Serious: Yes (Other)
  Sender: FDA-Public Use
  Company Number: IT-GLAXOSMITHKLINE-IT2019155257

PATIENT
  Age: 82 Year
  Sex: Female

DRUGS (5)
  1. DICLOFENAC [Suspect]
     Active Substance: DICLOFENAC
     Indication: PAIN
     Dosage: 1 DF, SINGLE
     Route: 062
     Dates: start: 20190630, end: 20190630
  2. MOVICOL [Concomitant]
     Active Substance: POLYETHYLENE GLYCOL 3350\POTASSIUM CHLORIDE\SODIUM BICARBONATE\SODIUM CHLORIDE
     Indication: ASTRINGENT THERAPY
     Dosage: 1 DF, UNK
     Route: 048
  3. TRIAZOLAM. [Concomitant]
     Active Substance: TRIAZOLAM
     Indication: ANXIETY
     Dosage: 0.25 MG, UNK
     Route: 048
  4. TAPENTADOL [Concomitant]
     Active Substance: TAPENTADOL
     Indication: PAIN
     Dosage: 100 MG, UNK
     Route: 048
  5. TAPENTADOL [Concomitant]
     Active Substance: TAPENTADOL
     Indication: ACNE

REACTIONS (2)
  - Application site ulcer [Recovered/Resolved with Sequelae]
  - Application site injury [Recovered/Resolved with Sequelae]

NARRATIVE: CASE EVENT DATE: 20190630
